FAERS Safety Report 6875768-5 (Version None)
Quarter: 2010Q3

REPORT INFORMATION
  Report Type: 
  Country: None (occurrence: None)
  Receive Date: 20100727
  Receipt Date: 20071001
  Transmission Date: 20110219
  Serious: Yes (Hospitalization, Other)
  Sender: FDA-Public Use
  Company Number: US-PFIZER INC-2006141197

PATIENT
  Sex: Female
  Weight: 81.6 kg

DRUGS (2)
  1. CELEBREX [Suspect]
     Indication: ARTHRITIS
     Route: 048
     Dates: start: 20030401
  2. BEXTRA [Suspect]
     Indication: ARTHRITIS
     Dates: start: 19990201, end: 20030201

REACTIONS (1)
  - MYOCARDIAL INFARCTION [None]
